FAERS Safety Report 4307302-8 (Version None)
Quarter: 2004Q1

REPORT INFORMATION
  Report Type: 
  Country: None (occurrence: None)
  Receive Date: 20040226
  Receipt Date: 20040220
  Transmission Date: 20041129
  Serious: Yes (Other)
  Sender: FDA-Public Use
  Company Number: 2003189478US

PATIENT
  Age: 42 Year
  Sex: Female

DRUGS (2)
  1. DEPO-PROVERA [Suspect]
     Indication: MENSTRUATION IRREGULAR
     Dosage: SEE IMAGE
     Dates: start: 19981001, end: 19981001
  2. DEPO-PROVERA [Suspect]
     Indication: MENSTRUATION IRREGULAR
     Dosage: SEE IMAGE
     Dates: start: 20021001, end: 20021001

REACTIONS (16)
  - ABORTION MISSED [None]
  - ABORTION SPONTANEOUS [None]
  - ACNE [None]
  - BENIGN BREAST NEOPLASM [None]
  - BLOOD PRESSURE INCREASED [None]
  - BREAST MASS [None]
  - BREAST MICROCALCIFICATION [None]
  - COMPLICATIONS OF MATERNAL EXPOSURE TO THERAPEUTIC DRUGS [None]
  - DEPRESSION [None]
  - INTRA-UTERINE DEATH [None]
  - MATERNAL DRUGS AFFECTING FOETUS [None]
  - METRORRHAGIA [None]
  - MOOD SWINGS [None]
  - SINUSITIS [None]
  - TWIN PREGNANCY [None]
  - WEIGHT INCREASED [None]
